FAERS Safety Report 15178001 (Version 1)
Quarter: 2018Q3

REPORT INFORMATION
  Report Type: Other
  Country: None (occurrence: FR)
  Receive Date: 20180721
  Receipt Date: 20180721
  Transmission Date: 20181010
  Serious: Yes (Other)
  Sender: FDA-Public Use
  Company Number: FR-MEDAC PHARMA, INC.-2052517

PATIENT
  Age: 53 Year
  Sex: Male

DRUGS (7)
  1. FOLIC ACID. [Concomitant]
     Active Substance: FOLIC ACID
  2. METHOTREXATE. [Suspect]
     Active Substance: METHOTREXATE
     Indication: PULMONARY SARCOIDOSIS
     Route: 058
     Dates: start: 2014
  3. CLINDAMYCIN. [Concomitant]
     Active Substance: CLINDAMYCIN
  4. AMOXICILLIN AND CLAVULANATE POTASSIUM [Concomitant]
     Active Substance: AMOXICILLIN\CLAVULANATE POTASSIUM
  5. PREDNISONE. [Concomitant]
     Active Substance: PREDNISONE
  6. METHOTREXATE. [Suspect]
     Active Substance: METHOTREXATE
     Indication: CUTANEOUS SARCOIDOSIS
     Route: 058
     Dates: start: 2014
  7. SULFADIAZINE. [Concomitant]
     Active Substance: SULFADIAZINE
     Dates: start: 201301

REACTIONS (4)
  - Skin necrosis [None]
  - Skin graft failure [Recovered/Resolved]
  - Skin graft [None]
  - Cellulitis [None]

NARRATIVE: CASE EVENT DATE: 201409
